FAERS Safety Report 18305342 (Version 1)
Quarter: 2020Q3

REPORT INFORMATION
  Report Type: Spontaneous
  Country: CA (occurrence: CA)
  Receive Date: 20200924
  Receipt Date: 20200924
  Transmission Date: 20201103
  Serious: Yes (Hospitalization)
  Sender: FDA-Public Use
  Company Number: CA-TEVA-2020-CA-1829966

PATIENT
  Age: 73 Year
  Sex: Female
  Weight: 74 kg

DRUGS (18)
  1. LAX?A?DAY [Concomitant]
     Active Substance: POLYETHYLENE GLYCOL 3350
  2. PACLITAXEL INJECTION [Suspect]
     Active Substance: PACLITAXEL
     Indication: OVARIAN NEOPLASM
  3. MEROPENEM. [Concomitant]
     Active Substance: MEROPENEM
  4. POTASSIUM [Concomitant]
     Active Substance: POTASSIUM
  5. SOLU?CORTEF [Concomitant]
     Active Substance: HYDROCORTISONE SODIUM SUCCINATE
  6. CARBOPLATIN. [Suspect]
     Active Substance: CARBOPLATIN
     Indication: OVARIAN NEOPLASM
     Route: 065
  7. MORPHINE [Concomitant]
     Active Substance: MORPHINE
  8. ROSUVASTATIN. [Concomitant]
     Active Substance: ROSUVASTATIN
  9. PANTOLOC [Concomitant]
     Active Substance: PANTOPRAZOLE SODIUM
  10. DIPHENHYDRAMINE. [Concomitant]
     Active Substance: DIPHENHYDRAMINE
  11. ELAVIL [Concomitant]
     Active Substance: AMITRIPTYLINE HYDROCHLORIDE
  12. LYRICA [Concomitant]
     Active Substance: PREGABALIN
  13. LORAZEPAM. [Concomitant]
     Active Substance: LORAZEPAM
  14. ATIVAN [Concomitant]
     Active Substance: LORAZEPAM
  15. BISOPROLOL [Concomitant]
     Active Substance: BISOPROLOL
  16. ONDANSETRON [Concomitant]
     Active Substance: ONDANSETRON
  17. TYLENOL [Concomitant]
     Active Substance: ACETAMINOPHEN
  18. RANITIDINE. [Concomitant]
     Active Substance: RANITIDINE

REACTIONS (2)
  - Febrile neutropenia [Recovered/Resolved]
  - Urinary tract infection [Recovered/Resolved]
